FAERS Safety Report 4380137-6 (Version None)
Quarter: 2004Q2

REPORT INFORMATION
  Report Type: 
  Country: None (occurrence: None)
  Receive Date: 20040614
  Receipt Date: 20040315
  Transmission Date: 20050107
  Serious: No
  Sender: FDA-Public Use
  Company Number: M04-341-079

PATIENT
  Age: 55 Year
  Sex: Male

DRUGS (7)
  1. VELCADE [Suspect]
     Indication: MULTIPLE MYELOMA
     Dosage: 1.3 MG/M2: INTRAVENOUS BOLUS
     Route: 040
     Dates: start: 20040308, end: 20040311
  2. COMPAZINE [Concomitant]
  3. LOPERAMIDE HCL [Concomitant]
  4. LORAZEPAM [Concomitant]
  5. OMEPRAZOLE [Concomitant]
  6. OXYCODONE [Concomitant]
  7. TEMAZEPAM [Concomitant]

REACTIONS (3)
  - ABDOMINAL PAIN [None]
  - HERPES ZOSTER [None]
  - RASH [None]
